FAERS Safety Report 8801319 (Version 1)
Quarter: 2012Q4

REPORT INFORMATION
  Report Type: 
  Country: US (occurrence: US)
  Receive Date: 20120920
  Receipt Date: 20120920
  Transmission Date: 20130627
  Serious: Yes (Other)
  Sender: FDA-Public Use
  Company Number: US-UCBSA-066286

PATIENT
  Sex: Male

DRUGS (2)
  1. CIMZIA [Suspect]
     Indication: RHEUMATOID ARTHRITIS
     Dates: start: 201204, end: 2012
  2. METHOTREXATE [Concomitant]

REACTIONS (2)
  - Suicide attempt [Recovered/Resolved]
  - Suicidal ideation [Unknown]
